FAERS Safety Report 8275913-3 (Version None)
Quarter: 2012Q2

REPORT INFORMATION
  Report Type: 
  Country: None (occurrence: None)
  Receive Date: 20120412
  Receipt Date: 20120406
  Transmission Date: 20120825
  Serious: No
  Sender: FDA-Public Use
  Company Number: US-PFIZER INC-2012087519

PATIENT
  Sex: Male
  Weight: 88.4 kg

DRUGS (5)
  1. NORVASC [Suspect]
     Indication: HYPERTENSION
     Dosage: 10 MG, 1X/DAY
     Route: 048
     Dates: start: 20120405
  2. AMLODIPINE [Concomitant]
     Dosage: 10 MG, UNK
  3. ACETYLSALICYLIC ACID [Concomitant]
     Dosage: 81 MG, UNK
  4. LISINOPRIL [Concomitant]
     Dosage: 20 MG, UNK
  5. GLIMEPIRIDE [Concomitant]
     Dosage: 2.5 MG, UNK

REACTIONS (2)
  - COLOUR BLINDNESS ACQUIRED [None]
  - SENSATION OF FOREIGN BODY [None]
